FAERS Safety Report 6080016-2 (Version None)
Quarter: 2009Q1

REPORT INFORMATION
  Report Type: 
  Country: None (occurrence: None)
  Receive Date: 20090217
  Receipt Date: 20090209
  Transmission Date: 20090719
  Serious: Yes (Hospitalization)
  Sender: FDA-Public Use
  Company Number: UA-AVENTIS-200911350GDDC

PATIENT
  Age: 66 Year
  Sex: Female
  Weight: 95 kg

DRUGS (6)
  1. LANTUS [Suspect]
     Dosage: DOSE: UNK
     Route: 058
     Dates: start: 20050101
  2. AUTOPEN INSULIN INJECTION PEN [Suspect]
  3. INDAPAMIDE W/PERINDOPRIL [Concomitant]
     Dosage: DOSE QUANTITY: 2
     Dates: start: 20081101, end: 20090101
  4. GLUCOFAGE [Concomitant]
     Dates: start: 20081101, end: 20090201
  5. EGILOK [Concomitant]
     Dates: start: 20000101, end: 20090201
  6. CARDIOMAGNIL [Concomitant]
     Dates: start: 20000101

REACTIONS (5)
  - ANGINA PECTORIS [None]
  - CARDIAC FAILURE [None]
  - CONDITION AGGRAVATED [None]
  - CORONARY ARTERY DISEASE [None]
  - MYOCARDIAL FIBROSIS [None]
